FAERS Safety Report 17471966 (Version 1)
Quarter: 2020Q1

REPORT INFORMATION
  Report Type: Report from Study
  Country: IN (occurrence: IN)
  Receive Date: 20200228
  Receipt Date: 20200228
  Transmission Date: 20200409
  Serious: Yes (Death, Other)
  Sender: FDA-Public Use
  Company Number: IN-ROCHE-2558162

PATIENT

DRUGS (6)
  1. PACLITAXEL. [Suspect]
     Active Substance: PACLITAXEL
     Indication: NON-SMALL CELL LUNG CANCER
     Route: 065
  2. BEVACIZUMAB. [Suspect]
     Active Substance: BEVACIZUMAB
     Indication: NON-SMALL CELL LUNG CANCER
     Route: 065
  3. PEMETREXED. [Suspect]
     Active Substance: PEMETREXED
     Indication: NON-SMALL CELL LUNG CANCER
     Route: 065
  4. CARBOPLATIN. [Suspect]
     Active Substance: CARBOPLATIN
     Indication: NON-SMALL CELL LUNG CANCER
     Dosage: FOR FOUR CYCLES
     Route: 042
  5. GEFITINIB. [Suspect]
     Active Substance: GEFITINIB
     Indication: NON-SMALL CELL LUNG CANCER
     Route: 048
  6. GEMCITABINE. [Suspect]
     Active Substance: GEMCITABINE
     Indication: NON-SMALL CELL LUNG CANCER
     Route: 065

REACTIONS (30)
  - Decreased appetite [Unknown]
  - Diarrhoea [Unknown]
  - Dizziness [Unknown]
  - Rash [Unknown]
  - Haemoptysis [Unknown]
  - Anaemia [Unknown]
  - Fatigue [Unknown]
  - Inflammation [Unknown]
  - Hyponatraemia [Unknown]
  - Febrile neutropenia [Fatal]
  - Nephropathy toxic [Unknown]
  - Hypokalaemia [Unknown]
  - Hiccups [Unknown]
  - Interstitial lung disease [Unknown]
  - Skin ulcer [Unknown]
  - Hypomagnesaemia [Unknown]
  - Hypocalcaemia [Unknown]
  - Thrombocytopenia [Unknown]
  - Nausea [Unknown]
  - Hypertension [Unknown]
  - Embolism [Unknown]
  - Alanine aminotransferase increased [Unknown]
  - Infection [Unknown]
  - Weight decreased [Unknown]
  - Renal impairment [Unknown]
  - Hyperkalaemia [Unknown]
  - Bone marrow failure [Unknown]
  - Neutropenia [Unknown]
  - Vomiting [Unknown]
  - Mucosal inflammation [Unknown]
